FAERS Safety Report 22366619 (Version 1)
Quarter: 2023Q2

REPORT INFORMATION
  Report Type: Spontaneous
  Country: NL (occurrence: NL)
  Receive Date: 20230525
  Receipt Date: 20230525
  Transmission Date: 20230721
  Serious: Yes (Life-Threatening, Other)
  Sender: FDA-Public Use
  Company Number: None

PATIENT
  Sex: Male
  Weight: 88 kg

DRUGS (16)
  1. OXALIPLATIN [Suspect]
     Active Substance: OXALIPLATIN
     Indication: Colon cancer metastatic
     Dosage: 175 G
     Dates: start: 20230509, end: 20230509
  2. METOPROLOL SUCCINATE [Concomitant]
     Active Substance: METOPROLOL SUCCINATE
     Dosage: MODIFIED-RELEASE TABLET, 50 MG (MILLIGRAMS)
  3. OXAZEPAM [Concomitant]
     Active Substance: OXAZEPAM
     Dosage: TABLET, 10 MG (MILLIGRAM)
  4. PANTOPRAZOLE [Concomitant]
     Active Substance: PANTOPRAZOLE
     Dosage: GASTRO-RESISTANT TABLET, 40 MG (MILLIGRAMS)
  5. FENTANYL [Concomitant]
     Active Substance: FENTANYL
     Dosage: TABLET, 100 ?G (MICROGRAM)
  6. TEMAZEPAM [Concomitant]
     Active Substance: TEMAZEPAM
     Dosage: CAPSULE, 10 MG (MILLIGRAM)
  7. CARBASPIRIN CALCIUM [Concomitant]
     Active Substance: CARBASPIRIN CALCIUM
     Dosage: SACHET (POWDER), 100 MG (MILLIGRAMS)
  8. NIFEDIPINE [Concomitant]
     Active Substance: NIFEDIPINE
     Dosage: MODIFIED-RELEASE TABLET, 20 MG (MILLIGRAMS)
  9. METOCLOPRAMIDE [Concomitant]
     Active Substance: METOCLOPRAMIDE
     Dosage: TABLET, 10 MG (MILLIGRAM)
  10. ISOSORBIDE MONONITRATE [Concomitant]
     Active Substance: ISOSORBIDE MONONITRATE
     Dosage: MODIFIED-RELEASE CAPSULE, 25 MG (MILLIGRAMS)
  11. DEXAMETHASONE [Concomitant]
     Active Substance: DEXAMETHASONE
     Dosage: TABLET, 4 MG (MILLIGRAM)
  12. ONDANSETRON [Concomitant]
     Active Substance: ONDANSETRON
     Dosage: SMELTTABLET, 8 MG (MILLIGRAM)
  13. LEUCOVORIN CALCIUM [Concomitant]
     Active Substance: LEUCOVORIN CALCIUM
     Dosage: INJECTION FLUID, 10 MG/ML (MILLIGRAMS PER MILLILITER)
  14. BEVACIZUMAB [Concomitant]
     Active Substance: BEVACIZUMAB
     Dosage: INFUSION, 1 MG/MG (MILLIGRAMS PER MILLIGRAM)
  15. NITROGLYCERIN [Concomitant]
     Active Substance: NITROGLYCERIN
     Dosage: SPRAY, 0.4 MG/DOSE (MILLIGRAMS PER DOSE)
  16. FLUOROURACIL [Concomitant]
     Active Substance: FLUOROURACIL
     Dosage: INJECTION/INFUSION, 1 MG/MG (MILLIGRAM PER MILLIGRAM)

REACTIONS (2)
  - Arteriospasm coronary [Recovered/Resolved]
  - Acute myocardial infarction [Recovered/Resolved]
